FAERS Safety Report 6166459-7 (Version None)
Quarter: 2009Q2

REPORT INFORMATION
  Report Type: 
  Country: None (occurrence: None)
  Receive Date: 20090424
  Receipt Date: 20090416
  Transmission Date: 20091009
  Serious: Yes (Other)
  Sender: FDA-Public Use
  Company Number: US-PFIZER INC-2004225439US

PATIENT
  Sex: Female
  Weight: 82 kg

DRUGS (3)
  1. PROVERA [Suspect]
     Indication: MENOPAUSE
     Dosage: 2.5-10 MG
     Route: 048
     Dates: start: 19850101, end: 20010101
  2. PREMARIN [Suspect]
     Indication: MENOPAUSE
     Dosage: UNK
     Dates: start: 19850101, end: 20010101
  3. FEMHRT [Suspect]
     Indication: MENOPAUSE
     Dosage: UNK
     Dates: start: 19850101, end: 20010101

REACTIONS (1)
  - BREAST CANCER IN SITU [None]
